FAERS Safety Report 7293314-1 (Version None)
Quarter: 2011Q1

REPORT INFORMATION
  Report Type: 
  Country: None (occurrence: None)
  Receive Date: 20110215
  Receipt Date: 20110209
  Transmission Date: 20110831
  Serious: Yes (Other)
  Sender: FDA-Public Use
  Company Number: GXBR2011US00700

PATIENT
  Sex: Male

DRUGS (1)
  1. LORATADINE [Suspect]
     Indication: RHINORRHOEA
     Dosage: 10 MG, ONCE2SDO
     Route: 048
     Dates: start: 20110209, end: 20110209

REACTIONS (4)
  - CONVULSION [None]
  - LOSS OF CONSCIOUSNESS [None]
  - PANIC ATTACK [None]
  - ACCIDENTAL OVERDOSE [None]
